FAERS Safety Report 24081753 (Version 14)
Quarter: 2025Q2

REPORT INFORMATION
  Report Type: Spontaneous
  Country: US (occurrence: US)
  Receive Date: 20240712
  Receipt Date: 20250512
  Transmission Date: 20250716
  Serious: Yes (Other)
  Sender: BIOVITRUM
  Company Number: US-BIOVITRUM-2024-US-009766

PATIENT
  Age: 67 Year
  Sex: Female

DRUGS (17)
  1. VONJO [Suspect]
     Active Substance: PACRITINIB
     Indication: Myelofibrosis
     Route: 048
     Dates: start: 20240628
  2. VONJO [Suspect]
     Active Substance: PACRITINIB
     Indication: Neutropenia
     Route: 048
  3. VONJO [Suspect]
     Active Substance: PACRITINIB
     Route: 048
     Dates: start: 202406
  4. VONJO [Suspect]
     Active Substance: PACRITINIB
     Route: 048
     Dates: start: 20240628
  5. VONJO [Suspect]
     Active Substance: PACRITINIB
     Route: 048
  6. DULOXETINE [Concomitant]
     Active Substance: DULOXETINE
     Indication: Product used for unknown indication
  7. LEVOTHYROXINE [Concomitant]
     Active Substance: LEVOTHYROXINE
     Indication: Product used for unknown indication
  8. NALTREXONE [Concomitant]
     Active Substance: NALTREXONE
     Indication: Product used for unknown indication
  9. ONDANSETRON [Concomitant]
     Active Substance: ONDANSETRON
     Indication: Product used for unknown indication
  10. POSACONAZOLE [Concomitant]
     Active Substance: POSACONAZOLE
     Indication: Product used for unknown indication
  11. TIZANIDINE [Concomitant]
     Active Substance: TIZANIDINE
     Indication: Product used for unknown indication
  12. TOPIRAMATE [Concomitant]
     Active Substance: TOPIRAMATE
     Indication: Product used for unknown indication
  13. WARFARIN/ WARFARIN SODIUM [Concomitant]
     Indication: Product used for unknown indication
  14. MIRALAX [Concomitant]
     Active Substance: POLYETHYLENE GLYCOL 3350
     Indication: Product used for unknown indication
  15. ZOFRAN [Concomitant]
     Active Substance: ONDANSETRON HYDROCHLORIDE
     Indication: Product used for unknown indication
  16. PROCHLORPERAZINE [Concomitant]
     Active Substance: PROCHLORPERAZINE
     Indication: Product used for unknown indication
  17. WALGREEN ALLERGY RELIEF [Concomitant]
     Indication: Product used for unknown indication

REACTIONS (27)
  - Diarrhoea [Unknown]
  - Nausea [Unknown]
  - Arthralgia [Not Recovered/Not Resolved]
  - Myalgia [Unknown]
  - Pruritus [Unknown]
  - Muscle spasms [Unknown]
  - Bone pain [Unknown]
  - Cellulitis [Recovering/Resolving]
  - Fatigue [Unknown]
  - Pain [Unknown]
  - Burning sensation [Unknown]
  - Pain of skin [Unknown]
  - Discomfort [Unknown]
  - Decreased appetite [Unknown]
  - Constipation [Unknown]
  - Gastric dilatation [Unknown]
  - Weight decreased [Unknown]
  - Off label use [Not Recovered/Not Resolved]
  - Coccidioidomycosis [Recovered/Resolved]
  - Platelet count increased [Recovering/Resolving]
  - Product dose omission issue [Unknown]
  - Neuropathy peripheral [Unknown]
  - Blue toe syndrome [Unknown]
  - Paraesthesia [Unknown]
  - Gastrointestinal disorder [Unknown]
  - Dysphonia [Unknown]
  - Haemoglobin decreased [Unknown]

NARRATIVE: CASE EVENT DATE: 20240628
